FAERS Safety Report 5220470-9 (Version None)
Quarter: 2007Q1

REPORT INFORMATION
  Report Type: 
  Country: None (occurrence: None)
  Receive Date: 20061201
  Receipt Date: 20060710
  Transmission Date: 20070707
  Serious: No
  Sender: FDA-Public Use
  Company Number: 2006PV017226

PATIENT
  Age: 52 Year
  Sex: Female
  Weight: 72.5755 kg

DRUGS (6)
  1. BYETTA [Suspect]
     Indication: DIABETES MELLITUS
     Dosage: SEE IMAGE
     Route: 058
     Dates: start: 20060401, end: 20060501
  2. BYETTA [Suspect]
     Indication: DIABETES MELLITUS
     Dosage: SEE IMAGE
     Route: 058
     Dates: start: 20060501, end: 20060601
  3. BYETTA [Suspect]
     Indication: DIABETES MELLITUS
     Dosage: SEE IMAGE
     Route: 058
     Dates: start: 20060601, end: 20060601
  4. METFORMIN HCL [Concomitant]
  5. THYROID TAB [Concomitant]
  6. HIGH BLOOD PRESSURE MEDICATION [Concomitant]

REACTIONS (11)
  - BLOOD TRIGLYCERIDES INCREASED [None]
  - DIARRHOEA [None]
  - DYSPNOEA [None]
  - EYELID PTOSIS [None]
  - GASTROOESOPHAGEAL REFLUX DISEASE [None]
  - HEPATIC ENZYME INCREASED [None]
  - HEPATIC STEATOSIS [None]
  - INJECTION SITE PAIN [None]
  - INJECTION SITE URTICARIA [None]
  - IRRITABLE BOWEL SYNDROME [None]
  - NAUSEA [None]
